FAERS Safety Report 18595432 (Version 1)
Quarter: 2020Q4

REPORT INFORMATION
  Report Type: Spontaneous
  Country: US (occurrence: US)
  Receive Date: 20201209
  Receipt Date: 20201209
  Transmission Date: 20210114
  Serious: No
  Sender: FDA-Public Use
  Company Number: US-VERTEX PHARMACEUTICALS-2020-023806

PATIENT
  Sex: Male
  Weight: 16.1 kg

DRUGS (2)
  1. PULMOZYME [Concomitant]
     Active Substance: DORNASE ALFA
  2. ORKAMBI [Suspect]
     Active Substance: IVACAFTOR\LUMACAFTOR
     Indication: CYSTIC FIBROSIS
     Dosage: 1 DOSAGE FORM, BID (MIX 1 PACKET INTO 1 TEASPOONFUL (5 ML) OF SOFT FOOD OR LIQUID )
     Route: 048

REACTIONS (1)
  - SARS-CoV-2 test positive [Unknown]
